FAERS Safety Report 25151299 (Version 1)
Quarter: 2025Q2

REPORT INFORMATION
  Report Type: Spontaneous
  Country: US (occurrence: US)
  Receive Date: 20250402
  Receipt Date: 20250402
  Transmission Date: 20250717
  Serious: Yes (Other)
  Sender: SANOFI AVENTIS
  Company Number: US-DialogSolutions-SAAVPROD-PI753895-C1

PATIENT
  Age: 61 Year
  Sex: Male

DRUGS (2)
  1. OXALIPLATIN [Suspect]
     Active Substance: OXALIPLATIN
     Indication: Adenocarcinoma of colon
  2. CAPECITABINE [Suspect]
     Active Substance: CAPECITABINE
     Indication: Adenocarcinoma of colon

REACTIONS (7)
  - Thrombotic thrombocytopenic purpura [Recovered/Resolved]
  - Anaemia [Recovered/Resolved]
  - Thrombocytosis [Recovered/Resolved]
  - Encephalopathy [Recovered/Resolved]
  - Febrile convulsion [Recovered/Resolved]
  - Thrombocytopenia [Recovered/Resolved]
  - Small intestinal obstruction [Unknown]
